FAERS Safety Report 7286999-7 (Version None)
Quarter: 2011Q1

REPORT INFORMATION
  Report Type: 
  Country: None (occurrence: None)
  Receive Date: 20110211
  Receipt Date: 20110127
  Transmission Date: 20110831
  Serious: No
  Sender: FDA-Public Use
  Company Number: US-BIOGENIDEC-2011BI004171

PATIENT
  Age: 37 Year
  Sex: Female

DRUGS (2)
  1. TYSABRI [Suspect]
     Indication: MULTIPLE SCLEROSIS
     Route: 042
     Dates: start: 20100108
  2. TYSABRI [Suspect]
     Route: 042
     Dates: start: 20080118, end: 20090423

REACTIONS (3)
  - DIARRHOEA [None]
  - PYREXIA [None]
  - TOOTH INFECTION [None]
